FAERS Safety Report 25224201 (Version 1)
Quarter: 2025Q2

REPORT INFORMATION
  Report Type: Spontaneous
  Country: PS (occurrence: PS)
  Receive Date: 20250422
  Receipt Date: 20250422
  Transmission Date: 20250716
  Serious: Yes (Other)
  Sender: AMGEN
  Company Number: PS-AMGEN-PSESP2025075349

PATIENT
  Age: 16 Year
  Sex: Male

DRUGS (14)
  1. FILGRASTIM [Suspect]
     Active Substance: FILGRASTIM
     Indication: Neutrophil count increased
     Dosage: 300 MICROGRAM, QD
     Route: 058
  2. DOXORUBICIN [Suspect]
     Active Substance: DOXORUBICIN
     Indication: Ewing^s sarcoma
     Dosage: 75 MILLIGRAM/SQ. METER, Q3WK
     Route: 040
  3. DACTINOMYCIN [Suspect]
     Active Substance: DACTINOMYCIN
     Indication: Product used for unknown indication
     Route: 065
  4. IFOSFAMIDE [Concomitant]
     Active Substance: IFOSFAMIDE
     Indication: Ewing^s sarcoma
     Route: 040
  5. ETOPOSIDE [Concomitant]
     Active Substance: ETOPOSIDE
     Indication: Ewing^s sarcoma
     Dosage: 100 MILLIGRAM/SQ. METER, QD
     Route: 040
  6. MESNA [Concomitant]
     Active Substance: MESNA
     Indication: Ewing^s sarcoma
     Dosage: 600 MILLIGRAM/SQ. METER, TID (FOR 5 DAYS)
     Route: 040
  7. CEFTAZIDIME [Concomitant]
     Active Substance: CEFTAZIDIME
     Indication: Bacterial infection
  8. AMIKACIN [Concomitant]
     Active Substance: AMIKACIN
     Indication: Bacterial infection
  9. NAPROXEN [Concomitant]
     Active Substance: NAPROXEN
     Dosage: 250 MILLIGRAM, BID
  10. VINCRISTINE [Concomitant]
     Active Substance: VINCRISTINE
     Indication: Ewing^s sarcoma
     Dosage: 1.5 MILLIGRAM/SQ. METER, Q3WK
     Route: 040
  11. CYCLOPHOSPHAMIDE [Concomitant]
     Active Substance: CYCLOPHOSPHAMIDE
     Indication: Ewing^s sarcoma
     Dosage: 1200 MILLIGRAM/SQ. METER, Q3WK
     Route: 040
  12. ZOLEDRONIC ACID [Concomitant]
     Active Substance: ZOLEDRONIC ACID
     Route: 040
  13. IRINOTECAN [Concomitant]
     Active Substance: IRINOTECAN
     Route: 040
  14. TEMOZOLOMIDE [Concomitant]
     Active Substance: TEMOZOLOMIDE
     Dosage: 100 MILLIGRAM/SQ. METER, QD
     Route: 048

REACTIONS (2)
  - Ewing^s sarcoma [Unknown]
  - Cardiotoxicity [Unknown]
